FAERS Safety Report 18985325 (Version 1)
Quarter: 2021Q1

REPORT INFORMATION
  Report Type: Report from Study
  Country: None (occurrence: CA)
  Receive Date: 20210309
  Receipt Date: 20210309
  Transmission Date: 20210420
  Serious: Yes (Other)
  Sender: FDA-Public Use
  Company Number: CA-ABBVIE-21K-028-3805610-00

PATIENT
  Sex: Male

DRUGS (1)
  1. HUMIRA [Suspect]
     Active Substance: ADALIMUMAB
     Indication: COLITIS ULCERATIVE
     Route: 058
     Dates: start: 20180430, end: 2021

REACTIONS (4)
  - Hernia [Unknown]
  - Incision site pain [Not Recovered/Not Resolved]
  - Postoperative wound infection [Unknown]
  - Incision site complication [Not Recovered/Not Resolved]

NARRATIVE: CASE EVENT DATE: 2021
